FAERS Safety Report 6729741-8 (Version None)
Quarter: 2010Q2

REPORT INFORMATION
  Report Type: 
  Country: None (occurrence: None)
  Receive Date: 20100518
  Receipt Date: 20100505
  Transmission Date: 20101027
  Serious: Yes (Other)
  Sender: FDA-Public Use
  Company Number: US-RB-009370-10

PATIENT
  Age: 83 Year
  Sex: Female

DRUGS (3)
  1. MUCINEX [Suspect]
     Dosage: TOOK ONE DOSE OF ONE PILL
     Route: 048
     Dates: start: 20100428
  2. EVISTA [Concomitant]
  3. LEVAQUIN [Concomitant]

REACTIONS (8)
  - AGITATION [None]
  - EUPHORIC MOOD [None]
  - FEELING JITTERY [None]
  - HEADACHE [None]
  - INSOMNIA [None]
  - MALAISE [None]
  - NAUSEA [None]
  - ORAL DISCOMFORT [None]
